FAERS Safety Report 24940721 (Version 1)
Quarter: 2025Q1

REPORT INFORMATION
  Report Type: Spontaneous
  Country: US (occurrence: US)
  Receive Date: 20250207
  Receipt Date: 20250207
  Transmission Date: 20250409
  Serious: Yes (Hospitalization)
  Sender: STRIDES
  Company Number: US-STRIDES ARCOLAB LIMITED-2024SP016942

PATIENT
  Age: 48 Year
  Sex: Male

DRUGS (9)
  1. GABAPENTIN [Suspect]
     Active Substance: GABAPENTIN
     Indication: Chorea
     Route: 065
  2. BACLOFEN [Suspect]
     Active Substance: BACLOFEN
     Indication: Chorea
     Route: 065
  3. PREGABALIN [Suspect]
     Active Substance: PREGABALIN
     Indication: Chorea
     Route: 065
  4. PRAMIPEXOLE DIHYDROCHLORIDE [Suspect]
     Active Substance: PRAMIPEXOLE DIHYDROCHLORIDE
     Indication: Chorea
     Route: 065
  5. CLONAZEPAM [Suspect]
     Active Substance: CLONAZEPAM
     Indication: Chorea
     Route: 065
  6. BENZTROPINE [Suspect]
     Active Substance: BENZTROPINE
     Indication: Chorea
     Route: 065
  7. TETRABENAZINE [Suspect]
     Active Substance: TETRABENAZINE
     Indication: Chorea
     Route: 065
  8. RISPERIDONE [Concomitant]
     Active Substance: RISPERIDONE
     Indication: Chorea
     Route: 065
  9. AMFETAMINE SULFATE;DEXAMFETAMINE SULFATE [Concomitant]
     Indication: Product used for unknown indication
     Route: 065

REACTIONS (2)
  - Therapy non-responder [Unknown]
  - Off label use [Unknown]
